FAERS Safety Report 16407839 (Version 1)
Quarter: 2019Q2

REPORT INFORMATION
  Report Type: Spontaneous
  Country: US (occurrence: US)
  Receive Date: 20190610
  Receipt Date: 20190610
  Transmission Date: 20190711
  Serious: No
  Sender: FDA-Public Use
  Company Number: US-AUROBINDO-AUR-APL-2018-046892

PATIENT

DRUGS (1)
  1. VENLAFAXINE HYDROCHLORIDE EXTENDED-RELEASE CAPSULES 75MG [Suspect]
     Active Substance: VENLAFAXINE HYDROCHLORIDE
     Indication: PRODUCT USED FOR UNKNOWN INDICATION
     Route: 065

REACTIONS (13)
  - Panic disorder [Unknown]
  - Confusional state [Unknown]
  - Anxiety [Unknown]
  - Tremor [Unknown]
  - Crying [Unknown]
  - Product substitution issue [Unknown]
  - Throat tightness [Unknown]
  - Muscle twitching [Unknown]
  - Psychiatric symptom [Unknown]
  - Disturbance in attention [Unknown]
  - Dysphemia [Unknown]
  - Dyspnoea [Unknown]
  - Insomnia [Unknown]
